FAERS Safety Report 6469476-2 (Version None)
Quarter: 2009Q4

REPORT INFORMATION
  Report Type: 
  Country: None (occurrence: None)
  Receive Date: 20091203
  Receipt Date: 20091125
  Transmission Date: 20100525
  Serious: Yes (Life-Threatening, Hospitalization)
  Sender: FDA-Public Use
  Company Number: GB-AMGEN-US214054

PATIENT
  Sex: Female
  Weight: 89 kg

DRUGS (7)
  1. ENBREL [Suspect]
     Indication: RHEUMATOID ARTHRITIS
     Route: 058
     Dates: start: 20051001, end: 20061003
  2. FOLIC ACID [Concomitant]
     Route: 048
     Dates: start: 20060901
  3. DOTHIEPIN HYDROCHLORIDE [Concomitant]
     Indication: DEPRESSION
     Route: 048
     Dates: start: 20010101
  4. MEGACE [Concomitant]
     Route: 048
     Dates: start: 20050101
  5. FEMARA [Concomitant]
     Indication: BREAST CANCER
     Route: 048
     Dates: start: 20050101
  6. METHOTREXATE [Concomitant]
     Indication: RHEUMATOID ARTHRITIS
     Route: 048
     Dates: start: 20060625
  7. LEVOTHYROXINE SODIUM [Concomitant]
     Route: 048
     Dates: start: 20020101

REACTIONS (1)
  - RHEUMATOID NODULE [None]
